FAERS Safety Report 24714172 (Version 3)
Quarter: 2024Q4

REPORT INFORMATION
  Report Type: Spontaneous
  Country: US (occurrence: US)
  Receive Date: 20241209
  Receipt Date: 20241230
  Transmission Date: 20250115
  Serious: Yes (Hospitalization)
  Sender: CALLIDITAS THERAPEUTICS AB
  Company Number: US-Calliditas-2024CAL02771

PATIENT
  Age: 43 Year
  Sex: Female

DRUGS (10)
  1. TARPEYO [Suspect]
     Active Substance: BUDESONIDE
     Indication: IgA nephropathy
     Route: 048
     Dates: start: 20240920
  2. CYANOCOBALAMIN [Concomitant]
     Active Substance: CYANOCOBALAMIN
  3. DOXAZOSIN [Concomitant]
     Active Substance: DOXAZOSIN\DOXAZOSIN MESYLATE
  4. HYDRALAZINE [Concomitant]
     Active Substance: HYDRALAZINE HYDROCHLORIDE
  5. LIPITOR [Concomitant]
     Active Substance: ATORVASTATIN CALCIUM
  6. NIFEDIPINE [Concomitant]
     Active Substance: NIFEDIPINE
  7. PREDNISONE [Concomitant]
     Active Substance: PREDNISONE
  8. TOPROL XL [Concomitant]
     Active Substance: METOPROLOL SUCCINATE
  9. VALSARTAN [Concomitant]
     Active Substance: VALSARTAN
  10. VALTREX [Concomitant]
     Active Substance: VALACYCLOVIR HYDROCHLORIDE

REACTIONS (3)
  - Glomerular filtration rate decreased [Not Recovered/Not Resolved]
  - Renal failure [Not Recovered/Not Resolved]
  - Dialysis [Not Recovered/Not Resolved]

NARRATIVE: CASE EVENT DATE: 20241203
